FAERS Safety Report 15635177 (Version 1)
Quarter: 2018Q4

REPORT INFORMATION
  Report Type: Spontaneous
  Country: FR (occurrence: FR)
  Receive Date: 20181120
  Receipt Date: 20181120
  Transmission Date: 20190205
  Serious: Yes (Hospitalization)
  Sender: FDA-Public Use
  Company Number: FR-TEVA-2018-FR-976333

PATIENT
  Age: 86 Year
  Sex: Female

DRUGS (2)
  1. DALACINE 300 MG, G?LULE [Suspect]
     Active Substance: CLINDAMYCIN PHOSPHATE
     Indication: INFECTION
     Dosage: 1800 MILLIGRAM DAILY;
     Route: 048
     Dates: start: 20180922, end: 20181010
  2. LEVOFLOXACINE [Suspect]
     Active Substance: LEVOFLOXACIN
     Indication: INFECTION
     Dosage: 750 MILLIGRAM DAILY;
     Route: 048
     Dates: start: 20180915, end: 20181010

REACTIONS (1)
  - Rash maculo-papular [Recovering/Resolving]

NARRATIVE: CASE EVENT DATE: 20181008
